FAERS Safety Report 23824864 (Version 1)
Quarter: 2024Q2

REPORT INFORMATION
  Report Type: Spontaneous
  Country: SE (occurrence: SE)
  Receive Date: 20240507
  Receipt Date: 20240507
  Transmission Date: 20240716
  Serious: Yes (Life-Threatening, Hospitalization, Disabling, Other)
  Sender: FDA-Public Use
  Company Number: None

PATIENT
  Age: 20 Year
  Sex: Female
  Weight: 78 kg

DRUGS (1)
  1. MIRENA [Suspect]
     Active Substance: LEVONORGESTREL
     Dosage: 20?G/DAY
     Route: 015
     Dates: start: 20170404, end: 20200122

REACTIONS (13)
  - Alopecia [Recovered/Resolved with Sequelae]
  - Malaise [Recovered/Resolved with Sequelae]
  - Quality of life decreased [Recovered/Resolved with Sequelae]
  - Anaemia [Recovered/Resolved with Sequelae]
  - Heavy menstrual bleeding [Recovered/Resolved with Sequelae]
  - Indifference [Recovered/Resolved with Sequelae]
  - Mucosal dryness [Recovered/Resolved with Sequelae]
  - Near death experience [Recovered/Resolved with Sequelae]
  - Presyncope [Recovered/Resolved with Sequelae]
  - Derealisation [Recovered/Resolved with Sequelae]
  - Loss of libido [Recovered/Resolved with Sequelae]
  - Dysmenorrhoea [Recovered/Resolved with Sequelae]
  - Psychiatric symptom [Recovered/Resolved with Sequelae]

NARRATIVE: CASE EVENT DATE: 20200124
